FAERS Safety Report 15762558 (Version 1)
Quarter: 2018Q4

REPORT INFORMATION
  Report Type: Report from Study
  Country: GB (occurrence: GB)
  Receive Date: 20181226
  Receipt Date: 20181226
  Transmission Date: 20190205
  Serious: Yes (Hospitalization)
  Sender: FDA-Public Use
  Company Number: GB-PFIZER INC-2018529663

PATIENT
  Age: 77 Year
  Sex: Male

DRUGS (9)
  1. CLOSTRIDIUM DIFFICILE TOXOIDS A-B VACCINE VS PLACEBO [Suspect]
     Active Substance: TETANUS TOXOIDS
     Indication: IMMUNISATION
     Dosage: UNK
     Route: 065
     Dates: start: 20151029
  2. CALCEOS [Concomitant]
     Active Substance: CALCIUM CARBONATE\CHOLECALCIFEROL
     Dosage: 500 MG, UNK
     Route: 048
     Dates: start: 20150731
  3. RAMIPRIL. [Suspect]
     Active Substance: RAMIPRIL
     Dosage: 1.25 MG, UNK
     Route: 048
     Dates: start: 2005, end: 20151110
  4. SIMVASTATIN. [Concomitant]
     Active Substance: SIMVASTATIN
     Dosage: 40 MG, UNK
     Route: 048
     Dates: start: 2012
  5. GAVISCON [MAGNESIUM ALGINATE;SODIUM ALGINATE] [Concomitant]
     Dosage: 5 ML, UNK
     Route: 048
     Dates: start: 2015
  6. FOLIC ACID. [Concomitant]
     Active Substance: FOLIC ACID
     Dosage: 5 MG, UNK
     Route: 048
     Dates: start: 2014, end: 20151110
  7. CLOSTRIDIUM DIFFICILE TOXOIDS A-B VACCINE VS PLACEBO [Suspect]
     Active Substance: TETANUS TOXOIDS
     Dosage: UNK
     Route: 030
     Dates: start: 20151105
  8. RANITIDINE. [Concomitant]
     Active Substance: RANITIDINE
     Dosage: 150 MG, UNK
     Route: 048
     Dates: start: 2015, end: 20151125
  9. SALBUTAMOL [Concomitant]
     Active Substance: ALBUTEROL
     Dosage: 100 UG, UNK
     Route: 048
     Dates: start: 2005

REACTIONS (1)
  - Fall [Recovered/Resolved]

NARRATIVE: CASE EVENT DATE: 20151110
